FAERS Safety Report 16591684 (Version 1)
Quarter: 2019Q3

REPORT INFORMATION
  Report Type: Spontaneous
  Country: JP (occurrence: JP)
  Receive Date: 20190718
  Receipt Date: 20190718
  Transmission Date: 20191004
  Serious: Yes (Death)
  Sender: FDA-Public Use
  Company Number: JP-MYLANLABS-2019M1066804

PATIENT
  Age: 70 Year
  Sex: Female

DRUGS (5)
  1. ABATACEPT [Suspect]
     Active Substance: ABATACEPT
     Dosage: 125 MILLIGRAM, QW
     Route: 065
  2. PREDNISOLONE. [Suspect]
     Active Substance: PREDNISOLONE
     Indication: INTERSTITIAL LUNG DISEASE
     Route: 048
     Dates: end: 2006
  3. IGURATIMOD [Suspect]
     Active Substance: IGURATIMOD
     Indication: POLYARTHRITIS
     Route: 065
     Dates: start: 201412
  4. CYCLOPHOSPHAMIDE. [Suspect]
     Active Substance: CYCLOPHOSPHAMIDE
     Indication: INTERSTITIAL LUNG DISEASE
     Route: 065
     Dates: end: 2005
  5. ABATACEPT [Suspect]
     Active Substance: ABATACEPT
     Indication: POLYARTHRITIS
     Dosage: MONOTHERAPY
     Route: 065
     Dates: start: 201111

REACTIONS (3)
  - Human T-cell lymphotropic virus type I infection [Fatal]
  - Adult T-cell lymphoma/leukaemia recurrent [Fatal]
  - Infection reactivation [Fatal]

NARRATIVE: CASE EVENT DATE: 201506
